FAERS Safety Report 6893603-6 (Version None)
Quarter: 2010Q3

REPORT INFORMATION
  Report Type: 
  Country: None (occurrence: None)
  Receive Date: 20100731
  Receipt Date: 20091021
  Transmission Date: 20110219
  Serious: No
  Sender: FDA-Public Use
  Company Number: US-PFIZER INC-2009267096

PATIENT
  Sex: Female
  Weight: 82.54 kg

DRUGS (8)
  1. LIPITOR [Suspect]
     Indication: BLOOD CHOLESTEROL INCREASED
     Dosage: 20 MG, 1X/DAY
     Route: 048
     Dates: start: 20070101
  2. CRESTOR [Suspect]
     Dosage: 5 MG, UNK
     Dates: start: 20090701
  3. LITHIUM [Concomitant]
     Dosage: 300 MG, 3X/DAY
  4. LEVOXYL [Concomitant]
     Dosage: 0.137 MG, 1X/DAY
  5. TOPROL-XL [Concomitant]
     Dosage: 50 MG, 1X/DAY
  6. FLAXSEED OIL [Concomitant]
     Dosage: UNK
  7. LOVAZA [Concomitant]
     Dosage: UNK
  8. TRANXENE [Concomitant]
     Dosage: FREQUENCY: AS NEEDED,

REACTIONS (4)
  - AMNESIA [None]
  - BLOOD CHOLESTEROL INCREASED [None]
  - CONSTIPATION [None]
  - MUSCLE SPASMS [None]
